FAERS Safety Report 10384435 (Version 2)
Quarter: 2014Q3

REPORT INFORMATION
  Report Type: Spontaneous
  Country: JP (occurrence: None)
  Receive Date: 20140812
  Receipt Date: 20140919
  Transmission Date: 20150326
  Serious: Yes (Death)
  Sender: FDA-Public Use
  Company Number: ABR_01760_2014

PATIENT
  Age: 40 Year
  Sex: Male

DRUGS (1)
  1. GLIADEL [Suspect]
     Active Substance: CARMUSTINE
     Indication: MALIGNANT GLIOMA
     Dosage: INTRACEREBRAL
     Dates: start: 20140520

REACTIONS (3)
  - Disease progression [None]
  - Cerebrospinal fluid leakage [None]
  - Impaired healing [None]

NARRATIVE: CASE EVENT DATE: 20140525
